FAERS Safety Report 4308965-3 (Version None)
Quarter: 2004Q1

REPORT INFORMATION
  Report Type: 
  Country: None (occurrence: None)
  Receive Date: 20040227
  Receipt Date: 20040218
  Transmission Date: 20041129
  Serious: Yes (Hospitalization)
  Sender: FDA-Public Use
  Company Number: 200410572GDS

PATIENT
  Age: 76 Year
  Sex: Female

DRUGS (3)
  1. ASPIRINETTA (ACETYLSALICYLIC ACID) [Suspect]
     Indication: CAROTID ARTERY STENOSIS
     Dosage: 100 MG, QD, ORAL
     Route: 048
     Dates: start: 20031206, end: 20040206
  2. ZIRTEC [Concomitant]
  3. SEREVENT [Concomitant]

REACTIONS (3)
  - ASTHENIA [None]
  - GASTRIC ULCER [None]
  - IRON DEFICIENCY ANAEMIA [None]
